FAERS Safety Report 18518082 (Version 3)
Quarter: 2020Q4

REPORT INFORMATION
  Report Type: Spontaneous
  Country: US (occurrence: US)
  Receive Date: 20201118
  Receipt Date: 20201209
  Transmission Date: 20210114
  Serious: Yes (Other)
  Sender: FDA-Public Use
  Company Number: US-PFIZER INC-2020453300

PATIENT
  Age: 62 Year
  Sex: Female

DRUGS (5)
  1. XANAX [Suspect]
     Active Substance: ALPRAZOLAM
     Indication: EPILEPSY
  2. XANAX [Suspect]
     Active Substance: ALPRAZOLAM
     Indication: ABDOMINAL DISCOMFORT
  3. XANAX [Suspect]
     Active Substance: ALPRAZOLAM
     Indication: PANIC DISORDER
     Dosage: UNK (6 TIMES A DAY)
  4. XANAX [Suspect]
     Active Substance: ALPRAZOLAM
     Indication: ANXIETY
     Dosage: UNK, 4X/DAY
  5. XANAX [Suspect]
     Active Substance: ALPRAZOLAM
     Indication: POST-TRAUMATIC STRESS DISORDER

REACTIONS (8)
  - Headache [Unknown]
  - Nausea [Unknown]
  - Mental disorder [Unknown]
  - Cluster headache [Unknown]
  - Anxiety [Unknown]
  - Post-traumatic stress disorder [Unknown]
  - Epilepsy [Unknown]
  - Irritable bowel syndrome [Unknown]
